FAERS Safety Report 8103085-4 (Version None)
Quarter: 2012Q1

REPORT INFORMATION
  Report Type: 
  Country: None (occurrence: None)
  Receive Date: 20120127
  Receipt Date: 20120116
  Transmission Date: 20120608
  Serious: Yes (Death, Other)
  Sender: FDA-Public Use
  Company Number: KAD201201-000027

PATIENT
  Age: 60 Year
  Sex: Male

DRUGS (7)
  1. AMPHOTERICIN B [Suspect]
     Indication: FUNGAL INFECTION
     Dosage: 50 MG/DAY UP TO A TOTAL DOSE OF 2400 MG
     Dates: start: 20090401
  2. CLINDAMYCIN [Suspect]
     Dosage: 900 MG PER DAY
     Dates: start: 20090408
  3. LEFLUNOMIDE [Suspect]
     Indication: RHEUMATOID ARTHRITIS
     Dosage: 20 MG PER DAY
  4. CIPROFLOXACIN [Suspect]
     Dosage: 400 MG PER DAY
     Dates: start: 20090408
  5. ADALIMUMAB (ADALIMUMAB) [Suspect]
     Indication: RHEUMATOID ARTHRITIS
     Dosage: 40 MG EVERY 15 DAYS, SUBCUTANEOUS
     Route: 058
  6. HYDROCORTONE [Suspect]
     Indication: PHLEBITIS
     Dosage: 25 MG /DAY UP TO A TOTAL DOSE OF 1500 MG
     Dates: start: 20090401
  7. METHOTREXATE [Suspect]
     Indication: RHEUMATOID ARTHRITIS
     Dosage: 15 MG PER WEEK

REACTIONS (11)
  - LOWER RESPIRATORY TRACT INFECTION FUNGAL [None]
  - GENERAL PHYSICAL HEALTH DETERIORATION [None]
  - PSEUDOMONAS TEST POSITIVE [None]
  - KLEBSIELLA TEST POSITIVE [None]
  - LEG AMPUTATION [None]
  - ACINETOBACTER TEST POSITIVE [None]
  - POSTOPERATIVE WOUND INFECTION [None]
  - SEPSIS [None]
  - PARACOCCIDIOIDES INFECTION [None]
  - NO THERAPEUTIC RESPONSE [None]
  - BONE SARCOMA [None]
